FAERS Safety Report 11912908 (Version 1)
Quarter: 2016Q1

REPORT INFORMATION
  Report Type: Spontaneous
  Country: None (occurrence: None)
  Receive Date: 20160112
  Receipt Date: 20160112
  Transmission Date: 20160526
  Serious: No
  Sender: FDA-Public Use
  Company Number: None

PATIENT
  Sex: Female

DRUGS (2)
  1. ROBITUSSIN SEVERE MULTI-SYMPTOM COUGH COLD FLU [Suspect]
     Active Substance: ACETAMINOPHEN\DEXTROMETHORPHAN HYDROBROMIDE\GUAIFENESIN\PHENYLEPHRINE HYDROCHLORIDE
     Indication: INFLUENZA
  2. ROBITUSSIN SEVERE MULTI-SYMPTOM COUGH COLD FLU [Suspect]
     Active Substance: ACETAMINOPHEN\DEXTROMETHORPHAN HYDROBROMIDE\GUAIFENESIN\PHENYLEPHRINE HYDROCHLORIDE
     Indication: COUGH

REACTIONS (2)
  - Product formulation issue [None]
  - Food allergy [None]

NARRATIVE: CASE EVENT DATE: 20160107
